FAERS Safety Report 12815604 (Version 1)
Quarter: 2016Q4

REPORT INFORMATION
  Report Type: Spontaneous
  Country: IT (occurrence: IT)
  Receive Date: 20161005
  Receipt Date: 20161005
  Transmission Date: 20170207
  Serious: Yes (Hospitalization)
  Sender: FDA-Public Use
  Company Number: IT-ASTRAZENECA-2016SF03855

PATIENT
  Age: 14015 Day
  Sex: Female

DRUGS (6)
  1. ZOLPIDEM [Suspect]
     Active Substance: ZOLPIDEM\ZOLPIDEM TARTRATE
     Dosage: 44.0MG ONCE/SINGLE ADMINISTRATION
     Route: 048
     Dates: start: 20160611, end: 20160611
  2. VATRAN [Suspect]
     Active Substance: DIAZEPAM
     Dosage: 3.0DF ONCE/SINGLE ADMINISTRATION
     Route: 048
     Dates: start: 20160611, end: 20160611
  3. DEPAKIN [Suspect]
     Active Substance: VALPROATE SODIUM
     Dosage: 2.0DF ONCE/SINGLE ADMINISTRATION
     Route: 048
     Dates: start: 20160611, end: 20160611
  4. SEROQUEL XR [Suspect]
     Active Substance: QUETIAPINE FUMARATE
     Dosage: 1.0DF ONCE/SINGLE ADMINISTRATION
     Route: 048
     Dates: start: 20160611, end: 20160611
  5. TRITTICO [Suspect]
     Active Substance: TRAZODONE HYDROCHLORIDE
     Dosage: 1.5DF ONCE/SINGLE ADMINISTRATION
     Route: 048
     Dates: start: 20160611, end: 20160611
  6. FRISIUM [Suspect]
     Active Substance: CLOBAZAM
     Dosage: 2.0DF ONCE/SINGLE ADMINISTRATION
     Route: 048
     Dates: start: 20160611, end: 20160611

REACTIONS (4)
  - Accidental overdose [Recovering/Resolving]
  - Psychomotor skills impaired [Recovering/Resolving]
  - Speech disorder [Recovering/Resolving]
  - Sinus tachycardia [Recovering/Resolving]

NARRATIVE: CASE EVENT DATE: 20160611
